FAERS Safety Report 12451535 (Version 1)
Quarter: 2016Q2

REPORT INFORMATION
  Report Type: Spontaneous
  Country: BH (occurrence: BH)
  Receive Date: 20160609
  Receipt Date: 20160609
  Transmission Date: 20160815
  Serious: Yes (Other)
  Sender: FDA-Public Use
  Company Number: BH-GLAXOSMITHKLINE-BH2016GSK067193

PATIENT
  Sex: Female

DRUGS (4)
  1. CLARITINE [Concomitant]
     Active Substance: LORATADINE
  2. VOLTAREN [Suspect]
     Active Substance: DICLOFENAC SODIUM
     Indication: PRODUCT USED FOR UNKNOWN INDICATION
     Dosage: 75 MG, QD
     Route: 030
     Dates: start: 20160214
  3. ADVIL [Concomitant]
     Active Substance: IBUPROFEN
  4. VOLTAREN [Suspect]
     Active Substance: DICLOFENAC SODIUM
     Dosage: 75 MG, QD
     Route: 030
     Dates: start: 20160228

REACTIONS (3)
  - Pain [Unknown]
  - Injection site mass [Not Recovered/Not Resolved]
  - Upper respiratory tract infection [Unknown]

NARRATIVE: CASE EVENT DATE: 20160505
